FAERS Safety Report 12621443 (Version 1)
Quarter: 2016Q3

REPORT INFORMATION
  Report Type: Spontaneous
  Country: US (occurrence: None)
  Receive Date: 20160803
  Receipt Date: 20160803
  Transmission Date: 20161109
  Serious: Yes (Disabling)
  Sender: FDA-Public Use
  Company Number: None

PATIENT
  Age: 57 Year
  Sex: Female
  Weight: 47.17 kg

DRUGS (2)
  1. TERBINAFINE HCL 250 MG TABLET, 250 MG INVAGEN AND/OR CAMBER [Suspect]
     Active Substance: TERBINAFINE HYDROCHLORIDE
     Indication: NAIL DISORDER
     Route: 048
     Dates: start: 20160604, end: 20160609
  2. BASIC MULTI VITAMI [Concomitant]

REACTIONS (14)
  - Dyspnoea [None]
  - Pulmonary congestion [None]
  - Fatigue [None]
  - Hyperhidrosis [None]
  - Weight decreased [None]
  - Hypoaesthesia [None]
  - Asthenia [None]
  - Palpitations [None]
  - Decreased appetite [None]
  - Pyrexia [None]
  - Fear [None]
  - Disorientation [None]
  - Gait disturbance [None]
  - Throat irritation [None]

NARRATIVE: CASE EVENT DATE: 20160608
